FAERS Safety Report 12822321 (Version 1)
Quarter: 2016Q4

REPORT INFORMATION
  Report Type: Report from Study
  Country: US (occurrence: US)
  Receive Date: 20161007
  Receipt Date: 20161007
  Transmission Date: 20170207
  Serious: Yes (Other)
  Sender: FDA-Public Use
  Company Number: US-ROCHE-1837175

PATIENT
  Age: 45 Year
  Sex: Female
  Weight: 92.1 kg

DRUGS (3)
  1. BEVACIZUMAB [Suspect]
     Active Substance: BEVACIZUMAB
     Indication: OVARIAN EPITHELIAL CANCER
     Dosage: 13/DEC/2013, 03/JAN/2014, 24/JAN/2014, 21/FEB/2014, 28/MAR/2014, 18/APR/2014, 09/MAY/2014, 30/MAY/20
     Route: 042
     Dates: start: 20131115
  2. VELIPARIB [Suspect]
     Active Substance: VELIPARIB
     Indication: OVARIAN EPITHELIAL CANCER
     Dosage: 15/NOV/2013, 13/DEC/2013, 03/JAN/2014, 24/JAN/2014, 21/FEB/2014???LAST TREATMENT: 09/JAN/2015.
     Route: 048
     Dates: start: 20131025
  3. BEVACIZUMAB [Suspect]
     Active Substance: BEVACIZUMAB
     Dosage: 18/JUL/2014, 07/AUG/2014, 05/SEP/2014, 26/SEP/2014, 31/OCT/2014, 21/NOV/2014, 19/DEC/2014
     Route: 042
     Dates: start: 20140627

REACTIONS (2)
  - Anaemia [Unknown]
  - Hypertension [Unknown]
